FAERS Safety Report 4790076-4 (Version None)
Quarter: 2005Q3

REPORT INFORMATION
  Report Type: 
  Country: None (occurrence: None)
  Receive Date: 20050914
  Receipt Date: 20041215
  Transmission Date: 20060218
  Serious: Yes (Other)
  Sender: FDA-Public Use
  Company Number: 163-20785-04120409

PATIENT
  Age: 31 Year
  Sex: Female
  Weight: 56.6996 kg

DRUGS (2)
  1. THALOMID [Suspect]
     Indication: MALIGNANT NEOPLASM OF AMPULLA OF VATER
     Dosage: 300 MG, QD, ORAL
     Route: 048
     Dates: start: 20041209, end: 20041213
  2. DOCETAXEL (DOCETAXEL) [Suspect]
     Indication: MALIGNANT NEOPLASM OF AMPULLA OF VATER
     Dosage: 25 MG WEEKLY, INTRAVENOUS
     Route: 042
     Dates: start: 20041202

REACTIONS (2)
  - FATIGUE [None]
  - SOMNOLENCE [None]
